FAERS Safety Report 7846445-9 (Version None)
Quarter: 2011Q4

REPORT INFORMATION
  Report Type: 
  Country: None (occurrence: None)
  Receive Date: 20111025
  Receipt Date: 20111025
  Transmission Date: 20120403
  Serious: No
  Sender: FDA-Public Use
  Company Number: None

PATIENT
  Age: 45 Year
  Sex: Female
  Weight: 63.502 kg

DRUGS (1)
  1. CHANTIX [Suspect]
     Indication: SMOKING CESSATION THERAPY
     Dosage: 1 MG TWICE A DAY
     Route: 048
     Dates: start: 20110919, end: 20111020

REACTIONS (2)
  - STOMATITIS [None]
  - TONGUE DISORDER [None]
